FAERS Safety Report 21611253 (Version 2)
Quarter: 2022Q4

REPORT INFORMATION
  Report Type: Spontaneous
  Country: US (occurrence: US)
  Receive Date: 20221117
  Receipt Date: 20221201
  Transmission Date: 20230112
  Serious: No
  Sender: FDA-Public Use
  Company Number: US-SA-SAC20221116000716

PATIENT
  Age: 58 Year
  Sex: Female

DRUGS (21)
  1. DUPIXENT [Suspect]
     Active Substance: DUPILUMAB
     Indication: Dermatitis allergic
     Dosage: 300 MG, QOW
     Route: 058
     Dates: start: 20221013
  2. ALBUTEROL SULFATE [Concomitant]
     Active Substance: ALBUTEROL SULFATE
     Dosage: 4MG
  3. ASPIRIN [Concomitant]
     Active Substance: ASPIRIN
     Dosage: 81MG
  4. CLOPIDOGREL [Concomitant]
     Active Substance: CLOPIDOGREL BISULFATE
     Dosage: 75 MG
  5. DIAZEPAM [Concomitant]
     Active Substance: DIAZEPAM
     Dosage: 2MG
  6. DULOXETINE [Concomitant]
     Active Substance: DULOXETINE
     Dosage: 60MG
  7. HYDROCODONE [Concomitant]
     Active Substance: HYDROCODONE
     Dosage: 10-325MG
  8. INVOKAMET [Concomitant]
     Active Substance: CANAGLIFLOZIN\METFORMIN HYDROCHLORIDE
     Dosage: 150-1000MG
  9. IPRATROPIUM BROMIDE [Concomitant]
     Active Substance: IPRATROPIUM BROMIDE
  10. METOPROLOL [Concomitant]
     Active Substance: METOPROLOL
     Dosage: 100MG
  11. ISOSORBIDE DINITRATE [Concomitant]
     Active Substance: ISOSORBIDE DINITRATE
     Dosage: 30MG
  12. LIPITOR [Concomitant]
     Active Substance: ATORVASTATIN CALCIUM
     Dosage: 80MG
  13. NITROGLYCERIN [Concomitant]
     Active Substance: NITROGLYCERIN
     Dosage: 0.6MG
  14. NOVOLIN NOS [Concomitant]
     Active Substance: INSULIN HUMAN
     Dosage: 70/3 SUS (70-30)
  15. PREGABALIN [Concomitant]
     Active Substance: PREGABALIN
     Dosage: 100MG
  16. OMEPRAZOLE [Concomitant]
     Active Substance: OMEPRAZOLE
     Dosage: 40MG
  17. SINGULAIR [Concomitant]
     Active Substance: MONTELUKAST SODIUM
     Dosage: 10MG
  18. TRESIBA [Concomitant]
     Active Substance: INSULIN DEGLUDEC
     Dosage: 100UNIT/ML
  19. VITAMIN B12 [Concomitant]
     Active Substance: CYANOCOBALAMIN
     Dosage: 1000 UG
  20. VITAMIN D2 [Concomitant]
     Active Substance: ERGOCALCIFEROL
     Dosage: 50 MCG
  21. TACROLIMUS [Concomitant]
     Active Substance: TACROLIMUS

REACTIONS (7)
  - Hot flush [Not Recovered/Not Resolved]
  - Feeling jittery [Unknown]
  - Respiratory tract infection [Not Recovered/Not Resolved]
  - Sinusitis [Not Recovered/Not Resolved]
  - Malaise [Unknown]
  - Illness [Unknown]
  - Injection site urticaria [Recovered/Resolved]

NARRATIVE: CASE EVENT DATE: 20221101
